FAERS Safety Report 8720849 (Version 2)
Quarter: 2012Q4

REPORT INFORMATION
  Report Type: Report from Study
  Country: BW (occurrence: BW)
  Receive Date: 20120813
  Receipt Date: 20120905
  Transmission Date: 20130627
  Serious: Yes (Death, Life-Threatening, Hospitalization)
  Sender: FDA-Public Use
  Company Number: BW-BRISTOL-MYERS SQUIBB COMPANY-16850505

PATIENT
  Age: 37 Year
  Sex: Male
  Weight: 60 kg

DRUGS (2)
  1. EFAVIRENZ CAPS [Suspect]
     Indication: HIV INFECTION
     Route: 048
     Dates: start: 20120308, end: 20120727
  2. TRUVADA [Suspect]
     Indication: HIV INFECTION
     Dosage: CAPS,1DF=300/200 mg,QD.
     Route: 048
     Dates: start: 20120308, end: 20120805

REACTIONS (2)
  - Liver disorder [Not Recovered/Not Resolved]
  - Hepatic failure [Fatal]
